FAERS Safety Report 20367548 (Version 2)
Quarter: 2022Q1

REPORT INFORMATION
  Report Type: Spontaneous
  Country: US (occurrence: US)
  Receive Date: 20220124
  Receipt Date: 20220201
  Transmission Date: 20220423
  Serious: No
  Sender: FDA-Public Use
  Company Number: US-TEVA-2022-US-1999540

PATIENT
  Age: 70 Year
  Sex: Male

DRUGS (1)
  1. HYDRALAZINE HYDROCHLORIDE [Suspect]
     Active Substance: HYDRALAZINE HYDROCHLORIDE
     Indication: Hypertension
     Route: 065

REACTIONS (11)
  - Nausea [Not Recovered/Not Resolved]
  - Insomnia [Not Recovered/Not Resolved]
  - Chest pain [Not Recovered/Not Resolved]
  - Contraindicated product administered [Not Recovered/Not Resolved]
  - Abdominal discomfort [Not Recovered/Not Resolved]
  - Feeling abnormal [Unknown]
  - Illness [Unknown]
  - Lip swelling [Unknown]
  - Gingival swelling [Unknown]
  - Product taste abnormal [Unknown]
  - Product colour issue [Unknown]

NARRATIVE: CASE EVENT DATE: 20211210
